APPROVED DRUG PRODUCT: LAMOTRIGINE
Active Ingredient: LAMOTRIGINE
Strength: 25MG
Dosage Form/Route: TABLET, FOR SUSPENSION;ORAL
Application: A076420 | Product #002
Applicant: TEVA PHARMACEUTICALS USA INC
Approved: Jun 21, 2006 | RLD: No | RS: No | Type: DISCN